FAERS Safety Report 13056086 (Version 1)
Quarter: 2016Q4

REPORT INFORMATION
  Report Type: Spontaneous
  Country: US (occurrence: US)
  Receive Date: 20161222
  Receipt Date: 20161222
  Transmission Date: 20170207
  Serious: Yes (Other)
  Sender: FDA-Public Use
  Company Number: US-LUNDBECK-DKLU2024147

PATIENT
  Sex: Female

DRUGS (3)
  1. ONFI [Suspect]
     Active Substance: CLOBAZAM
     Indication: EPILEPSY
     Route: 065
  2. ONFI [Suspect]
     Active Substance: CLOBAZAM
     Route: 065
  3. VIMPAT [Concomitant]
     Active Substance: LACOSAMIDE
     Indication: PRODUCT USED FOR UNKNOWN INDICATION
     Route: 065

REACTIONS (7)
  - Nausea [Unknown]
  - Seizure [Unknown]
  - Tremor [Unknown]
  - Dizziness [Unknown]
  - Anxiety [Unknown]
  - Depression [Unknown]
  - Headache [Unknown]
